FAERS Safety Report 4397589-8 (Version None)
Quarter: 2004Q3

REPORT INFORMATION
  Report Type: 
  Country: None (occurrence: None)
  Receive Date: 20040712
  Receipt Date: 20040707
  Transmission Date: 20050211
  Serious: Yes (Hospitalization)
  Sender: FDA-Public Use
  Company Number: 2004-06-0961

PATIENT
  Age: 62 Year
  Sex: Male

DRUGS (1)
  1. AERIUS (DESLORATADINE) TABLETS 'LIKE CLARINEX' [Suspect]
     Indication: PRURITUS
     Dosage: 5 MG QD ORAL
     Route: 048
     Dates: start: 20040215, end: 20040301

REACTIONS (5)
  - HEPATITIS CHOLESTATIC [None]
  - HEPATITIS GRANULOMATOUS [None]
  - HYPERGAMMAGLOBULINAEMIA [None]
  - PLASMACYTOSIS [None]
  - TREATMENT NONCOMPLIANCE [None]
